FAERS Safety Report 8436168-X (Version None)
Quarter: 2012Q2

REPORT INFORMATION
  Report Type: 
  Country: None (occurrence: None)
  Receive Date: 20120614
  Receipt Date: 20120604
  Transmission Date: 20120825
  Serious: Yes (Death, Other)
  Sender: FDA-Public Use
  Company Number: JP-PFIZER INC-2012125731

PATIENT
  Age: 39 Year
  Sex: Male
  Weight: 70 kg

DRUGS (11)
  1. LIPIDIL [Concomitant]
     Dosage: UNK
     Route: 048
     Dates: start: 20080101, end: 20120520
  2. BIO THREE [Concomitant]
     Dosage: UNK
     Dates: start: 20080101, end: 20120520
  3. LASIX [Concomitant]
     Dosage: UNK
     Dates: start: 20120401, end: 20120510
  4. KAYTWO [Concomitant]
     Dosage: UNK
     Route: 048
     Dates: start: 20080101, end: 20120520
  5. LIVACT [Concomitant]
     Dosage: UNK
     Route: 048
     Dates: start: 20080101, end: 20120520
  6. NIZATIDINE [Concomitant]
     Dosage: UNK
     Route: 048
     Dates: start: 20080101, end: 20120520
  7. FUTHAN [Concomitant]
     Dosage: UNK
     Dates: start: 20120511, end: 20120511
  8. CEFON [Concomitant]
     Dosage: UNK
     Dates: start: 20120511, end: 20120521
  9. CELEBREX [Suspect]
     Indication: ARTHRALGIA
     Dosage: 100 MG, 2X/DAY
     Route: 048
     Dates: start: 20120514, end: 20120515
  10. URSO 250 [Concomitant]
     Dosage: UNK
     Route: 048
     Dates: start: 20080101, end: 20120520
  11. ASACOL [Concomitant]
     Dosage: UNK
     Route: 048
     Dates: start: 20080101, end: 20120520

REACTIONS (6)
  - RENAL FAILURE [None]
  - RENAL IMPAIRMENT [None]
  - ANURIA [None]
  - HEPATIC ENCEPHALOPATHY [None]
  - HAEMATOCHEZIA [None]
  - HEPATIC FAILURE [None]
